FAERS Safety Report 14588859 (Version 1)
Quarter: 2018Q1

REPORT INFORMATION
  Report Type: Spontaneous
  Country: US (occurrence: US)
  Receive Date: 20180301
  Receipt Date: 20180301
  Transmission Date: 20180509
  Serious: Yes (Other)
  Sender: FDA-Public Use
  Company Number: US-ALLERGAN-1801824US

PATIENT
  Age: 63 Year
  Sex: Female

DRUGS (2)
  1. COMBIGAN [Suspect]
     Active Substance: BRIMONIDINE TARTRATE\TIMOLOL MALEATE
     Indication: GLAUCOMA
     Dosage: 2 GTT, BID
     Route: 047
     Dates: start: 2015, end: 2016
  2. LATANAPROST [Concomitant]
     Active Substance: LATANOPROST
     Indication: GLAUCOMA
     Dosage: UNK
     Route: 047

REACTIONS (9)
  - Fall [Recovered/Resolved]
  - Heart rate irregular [Recovered/Resolved]
  - Visual acuity reduced [Recovering/Resolving]
  - Loss of consciousness [Recovered/Resolved]
  - Head injury [Recovered/Resolved]
  - Dizziness [Recovered/Resolved]
  - Blood glucose abnormal [Unknown]
  - Blood pressure decreased [Recovered/Resolved]
  - Eye operation [Unknown]

NARRATIVE: CASE EVENT DATE: 201604
